FAERS Safety Report 21172164 (Version 2)
Quarter: 2022Q3

REPORT INFORMATION
  Report Type: Spontaneous
  Country: CL (occurrence: CL)
  Receive Date: 20220804
  Receipt Date: 20220913
  Transmission Date: 20221026
  Serious: Yes (Hospitalization, Other)
  Sender: FDA-Public Use
  Company Number: CL-BAXTER-2022BAX016634

PATIENT
  Age: 12 Year
  Sex: Female

DRUGS (1)
  1. DIANEAL PD-2 WITH DEXTROSE [Suspect]
     Active Substance: CALCIUM CHLORIDE\DEXTROSE\MAGNESIUM CHLORIDE\SODIUM CHLORIDE\SODIUM LACTATE
     Indication: Peritoneal dialysis
     Dosage: 1 BAG OF 6L
     Route: 033
     Dates: start: 202104

REACTIONS (5)
  - Azotaemia [Recovered/Resolved]
  - Anaemia [Recovered/Resolved]
  - Influenza [Recovered/Resolved]
  - Urinary tract infection [Recovered/Resolved]
  - Inadequate peritoneal dialysis [Recovered/Resolved]

NARRATIVE: CASE EVENT DATE: 20220725
